FAERS Safety Report 6032704-1 (Version None)
Quarter: 2009Q1

REPORT INFORMATION
  Report Type: 
  Country: None (occurrence: None)
  Receive Date: 20090109
  Receipt Date: 20090106
  Transmission Date: 20090719
  Serious: Yes (Life-Threatening)
  Sender: FDA-Public Use
  Company Number: CN-BAYER-200910375GPV

PATIENT
  Age: 85 Year
  Sex: Male

DRUGS (1)
  1. ULTRAVIST 300 [Suspect]
     Indication: VENOGRAM
     Dosage: TOTAL DAILY DOSE: 95 ML
     Route: 042
     Dates: start: 20081211, end: 20081211

REACTIONS (4)
  - BLOOD PRESSURE DECREASED [None]
  - BRADYCARDIA [None]
  - RESPIRATORY RATE INCREASED [None]
  - SYNCOPE [None]
